FAERS Safety Report 13897076 (Version 1)
Quarter: 2017Q3

REPORT INFORMATION
  Report Type: Spontaneous
  Country: US (occurrence: None)
  Receive Date: 20170822
  Receipt Date: 20170822
  Transmission Date: 20171127
  Serious: Yes (Hospitalization)
  Sender: FDA-Public Use
  Company Number: None

PATIENT
  Age: 46 Year
  Sex: Female

DRUGS (9)
  1. WELLBUTRIN [Suspect]
     Active Substance: BUPROPION HYDROCHLORIDE
  2. GLEOSTINE [Concomitant]
     Active Substance: LOMUSTINE
  3. BUPROPION. [Concomitant]
     Active Substance: BUPROPION
  4. ONDANSETRON [Concomitant]
     Active Substance: ONDANSETRON
  5. LEVETIRACETAM. [Concomitant]
     Active Substance: LEVETIRACETAM
  6. KEPPRA [Suspect]
     Active Substance: LEVETIRACETAM
  7. MATULANE [Concomitant]
     Active Substance: PROCARBAZINE HYDROCHLORIDE
  8. HYDROXYCHLOR [Concomitant]
     Active Substance: HYDROXYCHLOROQUINE
  9. VITAMIN D [Concomitant]
     Active Substance: CHOLECALCIFEROL

REACTIONS (3)
  - Seizure [None]
  - Urticaria [None]
  - Drug hypersensitivity [None]

NARRATIVE: CASE EVENT DATE: 20170726
